FAERS Safety Report 18574415 (Version 1)
Quarter: 2020Q4

REPORT INFORMATION
  Report Type: Spontaneous
  Country: US (occurrence: US)
  Receive Date: 20201203
  Receipt Date: 20201203
  Transmission Date: 20210114
  Serious: No
  Sender: FDA-Public Use
  Company Number: US-APOTEX-2020AP011133

PATIENT
  Sex: Female

DRUGS (2)
  1. NICOTINE. [Suspect]
     Active Substance: NICOTINE
     Indication: SMOKING CESSATION THERAPY
     Dosage: UNK
     Route: 062
  2. NICOTINE. [Suspect]
     Active Substance: NICOTINE
     Dosage: UNK  (7 PATCHES)
     Route: 062
     Dates: start: 20200513

REACTIONS (5)
  - Application site swelling [Unknown]
  - Application site irritation [Unknown]
  - Application site hypersensitivity [Unknown]
  - Application site erythema [Unknown]
  - Application site pruritus [Unknown]
